FAERS Safety Report 10982660 (Version 1)
Quarter: 2015Q1

REPORT INFORMATION
  Report Type: Spontaneous
  Country: US (occurrence: None)
  Receive Date: 20150302
  Receipt Date: 20150302
  Transmission Date: 20150721
  Serious: Yes (Other)
  Sender: FDA-Public Use
  Company Number: M2014-008

PATIENT
  Age: 16 Year
  Sex: Female

DRUGS (2)
  1. CANDIDA ALBICANS, 1:10 W/V HOLLISTERSTIER [Suspect]
     Active Substance: ALLERGENIC EXTRACT- CANDIDA
     Indication: SKIN PAPILLOMA
     Dosage: 1 DROP/SKIN PRICK
     Dates: start: 20140807
  2. CANDIDA ALBICANS, 1:10 W/V HOLLISTERSTIER [Suspect]
     Active Substance: ALLERGENIC EXTRACT- CANDIDA
     Indication: OFF LABEL USE
     Dosage: 1 DROP/SKIN PRICK
     Dates: start: 20140807

REACTIONS (3)
  - Chest discomfort [None]
  - Dyspnoea [None]
  - Cough [None]

NARRATIVE: CASE EVENT DATE: 20140807
